FAERS Safety Report 16575486 (Version 2)
Quarter: 2019Q4

REPORT INFORMATION
  Report Type: Report from Study
  Country: FR (occurrence: FR)
  Receive Date: 20190716
  Receipt Date: 20191004
  Transmission Date: 20200122
  Serious: Yes (Death, Hospitalization)
  Sender: FDA-Public Use
  Company Number: FR-ROCHE-2196552

PATIENT
  Sex: Male
  Weight: 77 kg

DRUGS (7)
  1. ATEZOLIZUMAB. [Suspect]
     Active Substance: ATEZOLIZUMAB
     Indication: TRANSITIONAL CELL CARCINOMA
     Route: 042
     Dates: start: 20180807, end: 20180807
  2. ROGARATINIB [Suspect]
     Active Substance: ROGARATINIB
     Indication: TRANSITIONAL CELL CARCINOMA
     Route: 048
     Dates: start: 20180807, end: 20180823
  3. ROGARATINIB [Suspect]
     Active Substance: ROGARATINIB
     Route: 048
     Dates: start: 20180824, end: 20180824
  4. ROGARATINIB [Suspect]
     Active Substance: ROGARATINIB
     Route: 048
     Dates: start: 20180828, end: 20180910
  5. ATEZOLIZUMAB. [Suspect]
     Active Substance: ATEZOLIZUMAB
     Route: 042
     Dates: start: 20180828, end: 20180918
  6. ROGARATINIB [Suspect]
     Active Substance: ROGARATINIB
     Route: 048
     Dates: start: 20180918, end: 20181001
  7. ROGARATINIB [Suspect]
     Active Substance: ROGARATINIB
     Route: 048
     Dates: start: 20180911, end: 20180917

REACTIONS (2)
  - General physical health deterioration [Fatal]
  - Supraventricular tachycardia [Fatal]

NARRATIVE: CASE EVENT DATE: 20181002
